FAERS Safety Report 24586296 (Version 1)
Quarter: 2024Q4

REPORT INFORMATION
  Report Type: Spontaneous
  Country: IT (occurrence: IT)
  Receive Date: 20241106
  Receipt Date: 20241106
  Transmission Date: 20250115
  Serious: Yes (Hospitalization, Congenital Anomaly, Other)
  Sender: SANDOZ
  Company Number: IT-002147023-NVSC2020IT291083

PATIENT

DRUGS (6)
  1. CYCLOSPORINE [Suspect]
     Active Substance: CYCLOSPORINE
     Indication: Foetal exposure during pregnancy
     Dosage: 3 MG/KG, QD
     Route: 064
  2. CYCLOSPORINE [Suspect]
     Active Substance: CYCLOSPORINE
     Indication: Prophylaxis against graft versus host disease
     Route: 065
  3. MYCOPHENOLATE MOFETIL [Suspect]
     Active Substance: MYCOPHENOLATE MOFETIL
     Indication: Foetal exposure during pregnancy
     Dosage: MATERNAL DOSE (30 MG/KG)
     Route: 064
  4. MYCOPHENOLATE MOFETIL [Suspect]
     Active Substance: MYCOPHENOLATE MOFETIL
     Indication: Prophylaxis against graft versus host disease
  5. SULFAMETHOXAZOLE\TRIMETHOPRIM [Suspect]
     Active Substance: SULFAMETHOXAZOLE\TRIMETHOPRIM
     Indication: Foetal exposure during pregnancy
     Dosage: UNK
     Route: 064
  6. SULFAMETHOXAZOLE\TRIMETHOPRIM [Suspect]
     Active Substance: SULFAMETHOXAZOLE\TRIMETHOPRIM
     Indication: Antifungal prophylaxis

REACTIONS (3)
  - Congenital diaphragmatic hernia [Recovered/Resolved]
  - Foetal exposure during pregnancy [Recovered/Resolved]
  - Premature baby [Unknown]
